FAERS Safety Report 5050573-3 (Version None)
Quarter: 2006Q3

REPORT INFORMATION
  Report Type: 
  Country: None (occurrence: None)
  Receive Date: 20060713
  Receipt Date: 20060626
  Transmission Date: 20061208
  Serious: Yes (Hospitalization)
  Sender: FDA-Public Use
  Company Number: JP-JPN-A200602285

PATIENT
  Age: 83 Year
  Sex: Female

DRUGS (6)
  1. VALTREX [Suspect]
     Indication: HERPES ZOSTER
     Dosage: 1000MG THREE TIMES PER DAY
     Route: 048
     Dates: start: 20060621, end: 20060626
  2. CYANOCOBALAMIN [Concomitant]
     Route: 065
  3. NAPROXEN [Concomitant]
     Route: 048
  4. TRICOR [Concomitant]
     Route: 048
  5. LIPIDIL [Concomitant]
     Route: 048
  6. MUCOSTA [Concomitant]
     Route: 048

REACTIONS (2)
  - MALAISE [None]
  - RENAL FAILURE ACUTE [None]
